FAERS Safety Report 6442484-3 (Version None)
Quarter: 2009Q4

REPORT INFORMATION
  Report Type: 
  Country: None (occurrence: None)
  Receive Date: 20091117
  Receipt Date: 20091106
  Transmission Date: 20100525
  Serious: Yes (Hospitalization)
  Sender: FDA-Public Use
  Company Number: US-BIOGENIDEC-2009BI031089

PATIENT
  Age: 58 Year
  Sex: Female

DRUGS (18)
  1. TYSABRI [Suspect]
     Indication: MULTIPLE SCLEROSIS
     Route: 042
     Dates: start: 20090327, end: 20090801
  2. SECTRAL [Concomitant]
     Indication: ARRHYTHMIA
     Route: 048
  3. FLEXERIL [Concomitant]
     Indication: DRUG USE FOR UNKNOWN INDICATION
     Route: 048
  4. PEPCID [Concomitant]
     Indication: DRUG USE FOR UNKNOWN INDICATION
     Route: 048
  5. SPIRONOLACTONE [Concomitant]
     Indication: DRUG USE FOR UNKNOWN INDICATION
     Route: 048
  6. OXCARBAZEPINE [Concomitant]
     Indication: DRUG USE FOR UNKNOWN INDICATION
     Route: 048
  7. LAMICTAL [Concomitant]
     Indication: DRUG USE FOR UNKNOWN INDICATION
     Route: 048
  8. LANTUS [Concomitant]
     Indication: DIABETES MELLITUS
     Route: 058
  9. LANTUS [Concomitant]
     Route: 058
  10. NOVOLOG [Concomitant]
     Indication: DIABETES MELLITUS
  11. PROTONIX [Concomitant]
     Indication: DRUG USE FOR UNKNOWN INDICATION
     Route: 048
  12. LORTAB [Concomitant]
     Indication: PAIN
  13. LASIX [Concomitant]
  14. POTASSIUM CHLORIDE [Concomitant]
  15. BACLOFEN [Concomitant]
  16. METOLAZONE [Concomitant]
  17. OMEPRAZOLE [Concomitant]
  18. PROMETHAZINE [Concomitant]

REACTIONS (5)
  - COLITIS ULCERATIVE [None]
  - ELECTROLYTE IMBALANCE [None]
  - KLEBSIELLA SEPSIS [None]
  - MULTIPLE SCLEROSIS [None]
  - URINARY TRACT INFECTION [None]
